FAERS Safety Report 5378954-9 (Version None)
Quarter: 2007Q3

REPORT INFORMATION
  Report Type: 
  Country: None (occurrence: None)
  Receive Date: 20070705
  Receipt Date: 20070625
  Transmission Date: 20080115
  Serious: Yes (Death, Hospitalization, Other)
  Sender: FDA-Public Use
  Company Number: FI-AMGEN-UK222025

PATIENT
  Sex: Female

DRUGS (15)
  1. ARANESP [Suspect]
     Indication: ANAEMIA OF MALIGNANT DISEASE
     Dates: start: 20061101, end: 20070301
  2. GEMCITABINE HCL [Concomitant]
     Dates: start: 20060601, end: 20070302
  3. VENOFER [Concomitant]
     Route: 042
     Dates: start: 20061213
  4. METOPROLOL TARTRATE [Concomitant]
     Route: 048
     Dates: start: 20040101
  5. CITALOPRAM HYDROBROMIDE [Concomitant]
     Dates: start: 20060501
  6. TENOX [Concomitant]
     Route: 048
  7. PARACETAMOL [Concomitant]
     Route: 048
  8. TRAMADOL HCL [Concomitant]
     Route: 048
  9. METOPRAM [Concomitant]
  10. KYTRIL [Concomitant]
  11. IMODIUM [Concomitant]
  12. FUROSEMIDE [Concomitant]
     Route: 042
  13. PRIMPERAN INJ [Concomitant]
  14. OXANEST [Concomitant]
     Route: 042
  15. PANTOPRAZOLE SODIUM [Concomitant]
     Route: 042

REACTIONS (13)
  - ABDOMINAL PAIN LOWER [None]
  - BILE DUCT OBSTRUCTION [None]
  - BLOOD CREATINE PHOSPHOKINASE INCREASED [None]
  - C-REACTIVE PROTEIN INCREASED [None]
  - CHEST PAIN [None]
  - DISORIENTATION [None]
  - ENCEPHALITIS [None]
  - ENCEPHALOPATHY [None]
  - LEUKOCYTOSIS [None]
  - LOSS OF CONSCIOUSNESS [None]
  - PANCREATIC CARCINOMA METASTATIC [None]
  - RHABDOMYOLYSIS [None]
  - VASCULITIS [None]
